FAERS Safety Report 11286487 (Version 2)
Quarter: 2015Q3

REPORT INFORMATION
  Report Type: Other
  Country: GB (occurrence: GB)
  Receive Date: 20150721
  Receipt Date: 20150812
  Transmission Date: 20151125
  Serious: Yes (Hospitalization)
  Sender: FDA-Public Use
  Company Number: GB-SUN PHARMACEUTICAL INDUSTRIES LTD-2015SUN01610

PATIENT
  Age: 60 Year
  Sex: Female

DRUGS (8)
  1. ORAMORPH [Suspect]
     Active Substance: MORPHINE SULFATE
     Indication: PRODUCT USED FOR UNKNOWN INDICATION
     Dosage: UNK
     Route: 065
  2. MST CONTINUS [Suspect]
     Active Substance: MORPHINE SULFATE
     Indication: FIBROMYALGIA
  3. QUETIAPINE [Suspect]
     Active Substance: QUETIAPINE
     Indication: PRODUCT USED FOR UNKNOWN INDICATION
     Dosage: 300 MG, UNK
     Route: 065
  4. VENLAFAXINE HYDROCHLORIDE 37.5MG TABLET [Suspect]
     Active Substance: VENLAFAXINE HYDROCHLORIDE
     Indication: PRODUCT USED FOR UNKNOWN INDICATION
     Dosage: 350 MG, DAILY
     Route: 065
  5. BUPRENORPHINE. [Suspect]
     Active Substance: BUPRENORPHINE
     Indication: PRODUCT USED FOR UNKNOWN INDICATION
     Dosage: 52 MCG, PATCH
     Route: 062
  6. AMITRIPTYLINE [Suspect]
     Active Substance: AMITRIPTYLINE
     Indication: POSTPARTUM DEPRESSION
     Dosage: 325 MG, UNK
     Route: 065
  7. DIAZEPAM. [Suspect]
     Active Substance: DIAZEPAM
     Indication: PRODUCT USED FOR UNKNOWN INDICATION
     Dosage: 10 MG, UNK
     Route: 065
  8. MST CONTINUS [Suspect]
     Active Substance: MORPHINE SULFATE
     Indication: BIPOLAR DISORDER
     Dosage: TID
     Route: 048

REACTIONS (10)
  - Dyspepsia [None]
  - Dermatitis allergic [Unknown]
  - Paraesthesia [Unknown]
  - Temperature intolerance [Unknown]
  - Neuropathy peripheral [Unknown]
  - Dyspepsia [Unknown]
  - Palpitations [Unknown]
  - Neuropathy peripheral [None]
  - Paraesthesia [None]
  - Overdose [Unknown]
